FAERS Safety Report 8784505 (Version 1)
Quarter: 2012Q4

REPORT INFORMATION
  Report Type: 
  Country: SE (occurrence: SE)
  Receive Date: 20120911
  Receipt Date: 20120911
  Transmission Date: 20130627
  Serious: Yes (Hospitalization)
  Sender: FDA-Public Use
  Company Number: SE-PFIZER INC-2012220201

PATIENT
  Age: 70 Year
  Sex: Male
  Weight: 76.4 kg

DRUGS (11)
  1. GENOTROPIN [Suspect]
     Indication: GROWTH HORMONE DEFICIENCY
     Dosage: 0.1 mg/day, 7 injections/week
     Route: 058
     Dates: start: 19981007
  2. CORTONE [Concomitant]
     Indication: BLOOD CORTICOTROPHIN DECREASED
     Dosage: UNK
     Dates: start: 19750101
  3. LOSEC [Concomitant]
     Indication: GASTRITIS
     Dosage: UNK
     Dates: start: 19991001
  4. LOSEC [Concomitant]
     Indication: GASTRODUODENITIS
  5. HYDROCORTISONE [Concomitant]
     Indication: BLOOD CORTICOTROPHIN DECREASED
     Dosage: UNK
     Dates: start: 20000701
  6. LIPITOR [Concomitant]
     Indication: HYPERLIPIDAEMIA
     Dosage: UNK
     Dates: start: 20000822
  7. LEVAXIN [Concomitant]
     Indication: ESSENTIAL HYPERTENSION
     Dosage: UNK
     Dates: start: 19781201
  8. TESTOGEL [Concomitant]
     Indication: BLOOD LUTEINISING HORMONE DECREASED
     Dosage: UNK
     Dates: start: 20040220
  9. TESTOGEL [Concomitant]
     Indication: BLOOD FOLLICLE STIMULATING HORMONE DECREASED
  10. TESTOGEL [Concomitant]
     Indication: HYPOGONADISM MALE
  11. PRAVIDEL [Concomitant]
     Indication: HYPERPROLACTINAEMIA
     Dosage: UNK
     Dates: start: 19781001

REACTIONS (1)
  - Retinal detachment [Unknown]
